FAERS Safety Report 6960984-4 (Version None)
Quarter: 2010Q3

REPORT INFORMATION
  Report Type: 
  Country: None (occurrence: None)
  Receive Date: 20100830
  Receipt Date: 20100817
  Transmission Date: 20110219
  Serious: Yes (Hospitalization)
  Sender: FDA-Public Use
  Company Number: MPS1-1000358

PATIENT
  Age: 49 Year
  Sex: Female
  Weight: 53 kg

DRUGS (8)
  1. ALDURAZYME [Suspect]
     Indication: MUCOPOLYSACCHARIDOSIS I
     Dosage: 0.58 MG/KG, 1X/W,
     Dates: start: 20051107
  2. COUMADIN [Concomitant]
  3. ALLEGRA [Concomitant]
  4. ACETAMINOPHEN [Concomitant]
  5. CENESTIN [Concomitant]
  6. VALIUM [Concomitant]
  7. PERCOCET [Concomitant]
  8. HEPARIN [Concomitant]

REACTIONS (3)
  - CERVICAL SPINAL STENOSIS [None]
  - HEADACHE [None]
  - HYPOAESTHESIA [None]
